FAERS Safety Report 5126183-6 (Version None)
Quarter: 2006Q3

REPORT INFORMATION
  Report Type: 
  Country: None (occurrence: None)
  Receive Date: 20060825
  Receipt Date: 20050930
  Transmission Date: 20061208
  Serious: Yes (Other)
  Sender: FDA-Public Use
  Company Number: HQWYE844105OCT05

PATIENT
  Age: 7 Year
  Sex: Female
  Weight: 23.61 kg

DRUGS (2)
  1. CHILDREN'S ADVIL [Suspect]
     Indication: NASOPHARYNGITIS
     Dosage: 2 TEASPOOONS, TWICE DAILY , ORAL
     Route: 048
     Dates: start: 20050929, end: 20050929
  2. CHILDREN'S ADVIL [Suspect]
     Indication: PYREXIA
     Dosage: 2 TEASPOOONS, TWICE DAILY , ORAL
     Route: 048
     Dates: start: 20050929, end: 20050929

REACTIONS (1)
  - BLOOD GLUCOSE INCREASED [None]
